FAERS Safety Report 6851666-8 (Version None)
Quarter: 2010Q3

REPORT INFORMATION
  Report Type: 
  Country: None (occurrence: None)
  Receive Date: 20100717
  Receipt Date: 20080221
  Transmission Date: 20110219
  Serious: No
  Sender: FDA-Public Use
  Company Number: US-PFIZER INC-2008006889

PATIENT
  Sex: Female
  Weight: 92.1 kg

DRUGS (5)
  1. CHANTIX [Suspect]
     Indication: SMOKING CESSATION THERAPY
     Dates: start: 20070808, end: 20070915
  2. PLAVIX [Concomitant]
  3. OXYCONTIN [Concomitant]
  4. CYMBALTA [Concomitant]
  5. SENOKOT [Concomitant]

REACTIONS (4)
  - ABNORMAL DREAMS [None]
  - FEELING ABNORMAL [None]
  - NAUSEA [None]
  - TOBACCO USER [None]
